FAERS Safety Report 8271466-4 (Version None)
Quarter: 2012Q2

REPORT INFORMATION
  Report Type: 
  Country: None (occurrence: None)
  Receive Date: 20120410
  Receipt Date: 20120329
  Transmission Date: 20120825
  Serious: Yes (Hospitalization, Other)
  Sender: FDA-Public Use
  Company Number: US-SANOFI-AVENTIS-2012SA022199

PATIENT
  Age: 71 Year
  Sex: Male
  Weight: 73.4 kg

DRUGS (14)
  1. DOCETAXEL [Suspect]
     Indication: SARCOMA
     Route: 041
     Dates: start: 20120229, end: 20120229
  2. DILTIAZEM HCL [Concomitant]
  3. ATORVASTATIN [Concomitant]
  4. COLACE [Concomitant]
  5. OXYGEN [Concomitant]
  6. VITAMIN B-12 [Concomitant]
  7. DEXAMETHASONE [Concomitant]
  8. MICARDIS [Concomitant]
  9. FOLIC ACID [Concomitant]
  10. PEPCID [Concomitant]
  11. DOCETAXEL [Suspect]
     Route: 042
     Dates: start: 20120315, end: 20120315
  12. PEMETREXED [Suspect]
     Indication: SARCOMA
     Route: 042
     Dates: start: 20120229, end: 20120229
  13. PEMETREXED [Suspect]
     Route: 042
     Dates: start: 20120315, end: 20120315
  14. OXYCODONE HCL [Concomitant]

REACTIONS (3)
  - LEUKOCYTOSIS [None]
  - HYPOXIA [None]
  - PNEUMONIA [None]
